FAERS Safety Report 8205297-8 (Version None)
Quarter: 2012Q1

REPORT INFORMATION
  Report Type: 
  Country: None (occurrence: None)
  Receive Date: 20120313
  Receipt Date: 20120306
  Transmission Date: 20120608
  Serious: Yes (Congenital Anomaly)
  Sender: FDA-Public Use
  Company Number: US-UCBSA-029771

PATIENT
  Sex: Female
  Weight: 2.99 kg

DRUGS (9)
  1. KEPPRA [Suspect]
     Route: 064
     Dates: start: 20100624, end: 20100717
  2. KEPPRA [Suspect]
     Route: 064
     Dates: start: 20100718, end: 20100803
  3. THYROID TAB [Concomitant]
     Indication: AUTOIMMUNE THYROIDITIS
     Route: 064
  4. PRENATE ELITE [Concomitant]
     Indication: PREGNANCY
     Dosage: 1 PILL
     Route: 064
  5. KEPPRA [Suspect]
     Route: 064
     Dates: start: 20100804, end: 20100817
  6. FOLIC ACID [Concomitant]
     Indication: PREGNANCY
     Route: 064
  7. VITAMIN D [Concomitant]
     Indication: VITAMIN SUPPLEMENTATION
     Route: 064
  8. CALCIUM CITRATE [Concomitant]
     Indication: MINERAL SUPPLEMENTATION
     Route: 064
  9. KEPPRA [Suspect]
     Indication: EPILEPSY
     Route: 064
     Dates: end: 20100623

REACTIONS (3)
  - ANKYLOGLOSSIA CONGENITAL [None]
  - DACRYOSTENOSIS CONGENITAL [None]
  - FOETAL EXPOSURE DURING PREGNANCY [None]
